FAERS Safety Report 7223517-3 (Version None)
Quarter: 2011Q1

REPORT INFORMATION
  Report Type: 
  Country: None (occurrence: None)
  Receive Date: 20110112
  Receipt Date: 20100913
  Transmission Date: 20110831
  Serious: No
  Sender: FDA-Public Use
  Company Number: US-ALLERGAN-1010338US

PATIENT
  Age: 75 Year
  Sex: Female

DRUGS (3)
  1. SOOTHE XP [Concomitant]
     Indication: DRY EYE
     Dosage: 1 GTT, PRN
     Route: 047
  2. RESTASIS [Suspect]
     Indication: DRY EYE
     Dosage: 1 GTT, BID
     Route: 047
     Dates: end: 20100809
  3. OPTIVE [Concomitant]
     Indication: DRY EYE
     Dosage: 1 GTT, PRN
     Route: 047

REACTIONS (4)
  - EYE DISORDER [None]
  - DRY EYE [None]
  - EYE PRURITUS [None]
  - EYELID OEDEMA [None]
